FAERS Safety Report 8464742-3 (Version None)
Quarter: 2012Q2

REPORT INFORMATION
  Report Type: 
  Country: None (occurrence: None)
  Receive Date: 20120626
  Receipt Date: 20120620
  Transmission Date: 20120825
  Serious: No
  Sender: FDA-Public Use
  Company Number: US-PFIZER INC-2010097338

PATIENT
  Sex: Male

DRUGS (1)
  1. SUTENT [Suspect]
     Indication: RENAL CELL CARCINOMA
     Dosage: 50 MG, DAILY X 28 DAYS Q 42 DAYS
     Dates: start: 20090218

REACTIONS (4)
  - DISEASE PROGRESSION [None]
  - THYROID DISORDER [None]
  - DIARRHOEA [None]
  - RENAL CELL CARCINOMA [None]
